FAERS Safety Report 9611066 (Version 4)
Quarter: 2014Q1

REPORT INFORMATION
  Report Type: Spontaneous
  Country: US (occurrence: US)
  Receive Date: 20131009
  Receipt Date: 20140207
  Transmission Date: 20141002
  Serious: Yes (Other)
  Sender: FDA-Public Use
  Company Number: US-ALLERGAN-1315585US

PATIENT
  Age: 84 Year
  Sex: Female
  Weight: 86.17 kg

DRUGS (6)
  1. RESTASIS [Suspect]
     Indication: SJOGREN^S SYNDROME
     Dosage: ONE DROP BOTH EYES TWICE A DAY
     Route: 047
     Dates: start: 201301, end: 201305
  2. RESTASIS [Suspect]
     Indication: DRY EYE
  3. LUMIGAN 0.01% [Concomitant]
     Indication: GLAUCOMA
     Dosage: ONE DROP BOTH EYES AT BEDTIME
     Route: 047
     Dates: start: 20100105
  4. ETODOLAC [Concomitant]
     Indication: PAIN
     Dosage: EVERY 12 HOURS AS NEEDED
     Route: 048
  5. BUMETANIDE [Concomitant]
     Indication: PRODUCT USED FOR UNKNOWN INDICATION
     Dosage: 2 MG, QD
     Route: 048
  6. LISINOPRIL [Concomitant]
     Dosage: 10 MG, QD
     Route: 048

REACTIONS (7)
  - B-cell lymphoma [Unknown]
  - Swelling face [Unknown]
  - Abnormal sensation in eye [Unknown]
  - Vision blurred [Unknown]
  - Ocular hyperaemia [Recovered/Resolved]
  - Eye irritation [Recovered/Resolved]
  - Eye burns [Recovered/Resolved]
